FAERS Safety Report 6550248-5 (Version None)
Quarter: 2010Q1

REPORT INFORMATION
  Report Type: 
  Country: None (occurrence: None)
  Receive Date: 20100119
  Receipt Date: 20100111
  Transmission Date: 20100710
  Serious: Yes (Death)
  Sender: FDA-Public Use
  Company Number: 2010000004

PATIENT
  Age: 66 Year
  Sex: Female

DRUGS (2)
  1. ERLOTONIB (ERLOTINIB) (TABLET) (ERLOTONIB) [Suspect]
     Indication: HEPATIC NEOPLASM MALIGNANT RECURRENT
     Dosage: 150 MG, QD, ORAL
     Route: 048
     Dates: start: 20091120, end: 20091127
  2. SORAFENIB (TABLET) [Suspect]
     Indication: HEPATIC NEOPLASM MALIGNANT RECURRENT
     Dosage: 800 MG, QD, ORAL
     Route: 048
     Dates: start: 20091120, end: 20091127

REACTIONS (1)
  - DEATH [None]
